FAERS Safety Report 17661809 (Version 4)
Quarter: 2020Q3

REPORT INFORMATION
  Report Type: Spontaneous
  Country: PT (occurrence: PT)
  Receive Date: 20200413
  Receipt Date: 20200917
  Transmission Date: 20201102
  Serious: Yes (Other)
  Sender: FDA-Public Use
  Company Number: PT-MYLANLABS-2020M1035583

PATIENT
  Age: 40 Year
  Sex: Female

DRUGS (3)
  1. ROPIVACAINE. [Suspect]
     Active Substance: ROPIVACAINE HYDROCHLORIDE
     Indication: ANALGESIC THERAPY
     Dosage: 5 MILLILITER
     Route: 065
  2. ROPIVACAINE. [Suspect]
     Active Substance: ROPIVACAINE HYDROCHLORIDE
     Indication: EPIDURAL ANAESTHESIA
     Dosage: 8 MILLILITER
     Route: 065
  3. SODIUM CHLORIDE. [Concomitant]
     Active Substance: SODIUM CHLORIDE
     Dosage: UNK

REACTIONS (10)
  - Speech disorder [Recovered/Resolved]
  - Acoustic neuroma [Recovered/Resolved with Sequelae]
  - Unmasking of previously unidentified disease [Recovered/Resolved]
  - Dysarthria [Recovered/Resolved]
  - Maternal exposure during pregnancy [Recovered/Resolved]
  - Facial paresis [Recovered/Resolved]
  - Brain neoplasm [Recovered/Resolved]
  - Headache [Recovered/Resolved]
  - Neurological symptom [Recovered/Resolved]
  - Diplopia [Recovered/Resolved]
